FAERS Safety Report 25240586 (Version 1)
Quarter: 2025Q2

REPORT INFORMATION
  Report Type: Spontaneous
  Country: US (occurrence: US)
  Receive Date: 20250425
  Receipt Date: 20250425
  Transmission Date: 20250717
  Serious: Yes (Death, Hospitalization)
  Sender: MYLAN
  Company Number: US-MYLANLABS-2025M1035046

PATIENT
  Age: 54 Year
  Sex: Male

DRUGS (8)
  1. DOXYCYCLINE [Suspect]
     Active Substance: DOXYCYCLINE
     Indication: Vibrio vulnificus infection
  2. DOXYCYCLINE [Suspect]
     Active Substance: DOXYCYCLINE
     Route: 065
  3. DOXYCYCLINE [Suspect]
     Active Substance: DOXYCYCLINE
     Route: 065
  4. DOXYCYCLINE [Suspect]
     Active Substance: DOXYCYCLINE
  5. CEFTRIAXONE [Suspect]
     Active Substance: CEFTRIAXONE
     Indication: Vibrio vulnificus infection
  6. CEFTRIAXONE [Suspect]
     Active Substance: CEFTRIAXONE
     Route: 065
  7. CEFTRIAXONE [Suspect]
     Active Substance: CEFTRIAXONE
     Route: 065
  8. CEFTRIAXONE [Suspect]
     Active Substance: CEFTRIAXONE

REACTIONS (1)
  - Drug ineffective [Fatal]
